FAERS Safety Report 13383633 (Version 2)
Quarter: 2017Q2

REPORT INFORMATION
  Report Type: Report from Study
  Country: US (occurrence: US)
  Receive Date: 20170329
  Receipt Date: 20170405
  Transmission Date: 20170830
  Serious: Yes (Hospitalization, Other)
  Sender: FDA-Public Use
  Company Number: US-PFIZER INC-2017127960

PATIENT
  Age: 28 Year
  Sex: Female

DRUGS (1)
  1. EPINEPHRINE. [Suspect]
     Active Substance: EPINEPHRINE
     Dosage: 1 MG, SINGLE
     Route: 050

REACTIONS (7)
  - Hypertension [Recovering/Resolving]
  - Tachycardia [Recovering/Resolving]
  - Hypotension [Recovering/Resolving]
  - ECG signs of myocardial ischaemia [Unknown]
  - Intentional product misuse [Unknown]
  - Pulmonary oedema [Unknown]
  - Left ventricular dysfunction [Unknown]
